FAERS Safety Report 20324884 (Version 2)
Quarter: 2022Q1

REPORT INFORMATION
  Report Type: Spontaneous
  Country: US (occurrence: US)
  Receive Date: 20220111
  Receipt Date: 20220125
  Transmission Date: 20220423
  Serious: No
  Sender: FDA-Public Use
  Company Number: US-Blueprint Medicines Corporation-SP-US-2021-002591

PATIENT
  Age: 24 Year
  Sex: Female

DRUGS (2)
  1. AYVAKIT [Suspect]
     Active Substance: AVAPRITINIB
     Indication: Haematopoietic neoplasm
     Route: 048
     Dates: start: 20211203
  2. AYVAKIT [Suspect]
     Active Substance: AVAPRITINIB
     Route: 048
     Dates: end: 20211225

REACTIONS (6)
  - Nausea [Unknown]
  - Diarrhoea [Unknown]
  - Rash pruritic [Unknown]
  - COVID-19 [Unknown]
  - Tryptase decreased [Unknown]
  - Pruritus [Unknown]
